FAERS Safety Report 6140160-8 (Version None)
Quarter: 2009Q2

REPORT INFORMATION
  Report Type: 
  Country: None (occurrence: None)
  Receive Date: 20090401
  Receipt Date: 20090323
  Transmission Date: 20091009
  Serious: Yes (Death)
  Sender: FDA-Public Use
  Company Number: JP-ABBOTT-08P-087-0459272-00

PATIENT
  Age: 82 Year
  Sex: Male

DRUGS (6)
  1. LUPLIN SR FOR INJECTION KIT 11.25 MG [Suspect]
     Indication: PROSTATE CANCER STAGE IV
     Route: 058
     Dates: start: 20070221, end: 20070221
  2. BICALUTAMIDE [Concomitant]
     Indication: PROSTATE CANCER STAGE IV
     Route: 048
     Dates: start: 20070124, end: 20070419
  3. LOXOPROFEN SODIUM [Concomitant]
     Indication: PAIN
     Route: 048
     Dates: start: 20070221, end: 20070320
  4. OXYCONTIN [Concomitant]
     Indication: DRUG USE FOR UNKNOWN INDICATION
     Route: 048
     Dates: start: 20070417, end: 20070528
  5. NOVAMIN [Concomitant]
     Indication: DRUG USE FOR UNKNOWN INDICATION
     Route: 062
     Dates: start: 20070417, end: 20070528
  6. MAGMITT [Concomitant]
     Indication: DRUG USE FOR UNKNOWN INDICATION
     Route: 048
     Dates: start: 20070417, end: 20070528

REACTIONS (1)
  - PROSTATE CANCER [None]
